FAERS Safety Report 7621766-3 (Version None)
Quarter: 2011Q3

REPORT INFORMATION
  Report Type: 
  Country: None (occurrence: None)
  Receive Date: 20110719
  Receipt Date: 20110711
  Transmission Date: 20111222
  Serious: Yes (Hospitalization, Other)
  Sender: FDA-Public Use
  Company Number: FR-BRISTOL-MYERS SQUIBB COMPANY-15898778

PATIENT
  Age: 72 Year
  Sex: Female

DRUGS (12)
  1. OXYCONTIN [Concomitant]
  2. DIAMICRON [Concomitant]
  3. PRAVASTATIN [Concomitant]
  4. LERCANIDIPINE [Concomitant]
  5. OXYCODONE HCL [Concomitant]
  6. METFORMIN HCL [Concomitant]
  7. OMEPRAZOLE [Concomitant]
  8. TAXOL [Suspect]
     Indication: LUNG NEOPLASM MALIGNANT
     Dosage: FIRST COURSE ON 27-JAN-2011 LAST AND THIRD COURSE ON 08-MAR-2011.
     Route: 042
     Dates: start: 20110308
  9. HYPERIUM [Concomitant]
  10. CARBOPLATIN [Suspect]
     Indication: LUNG NEOPLASM MALIGNANT
     Dosage: FIRST COURSE ON 27-JAN-2011 LAST AND THIRD COURSE ON 08-MAR-2011.
     Route: 042
     Dates: start: 20110308
  11. ENALAPRIL MALEATE [Concomitant]
  12. FERROUS SULFATE TAB [Concomitant]

REACTIONS (8)
  - ACUTE CORONARY SYNDROME [None]
  - HYPOALBUMINAEMIA [None]
  - ELECTROCARDIOGRAM QT PROLONGED [None]
  - CARDIAC FAILURE [None]
  - RENAL FAILURE [None]
  - DIARRHOEA [None]
  - PULMONARY OEDEMA [None]
  - VOMITING [None]
